FAERS Safety Report 4429620-5 (Version None)
Quarter: 2004Q3

REPORT INFORMATION
  Report Type: 
  Country: None (occurrence: None)
  Receive Date: 20040819
  Receipt Date: 20040810
  Transmission Date: 20050211
  Serious: Yes (Other)
  Sender: FDA-Public Use
  Company Number: 2004054567

PATIENT
  Age: 44 Year
  Sex: Male
  Weight: 84.369 kg

DRUGS (3)
  1. SUDAFED SINUS NIGHTTIME (PSEUDOEPHEDRINE, TRIPROLIDINE) [Suspect]
     Indication: MIGRAINE
     Dosage: 6-8 TABS DAILY, ORAL
     Route: 048
     Dates: start: 20040101, end: 20040101
  2. FLUOXETINE HCL [Concomitant]
  3. MONTELUKAST SODIUM [Concomitant]

REACTIONS (3)
  - DRUG DEPENDENCE [None]
  - IRRITABILITY [None]
  - SOMNOLENCE [None]
